FAERS Safety Report 7323944-X (Version None)
Quarter: 2011Q1

REPORT INFORMATION
  Report Type: 
  Country: None (occurrence: None)
  Receive Date: 20110301
  Receipt Date: 20110218
  Transmission Date: 20110831
  Serious: Yes (Hospitalization)
  Sender: FDA-Public Use
  Company Number: B0699080A

PATIENT
  Age: 52 Year
  Sex: Female

DRUGS (2)
  1. TYKERB [Suspect]
     Indication: BREAST CANCER
     Dosage: 1250MG PER DAY
     Route: 048
  2. CAPECITABINE [Concomitant]
     Indication: BREAST CANCER
     Dosage: 3000MG PER DAY
     Route: 048

REACTIONS (7)
  - DRUG ERUPTION [None]
  - C-REACTIVE PROTEIN INCREASED [None]
  - DECREASED APPETITE [None]
  - RASH PUSTULAR [None]
  - WHITE BLOOD CELL COUNT INCREASED [None]
  - ERYTHEMA [None]
  - PYREXIA [None]
